FAERS Safety Report 25238789 (Version 1)
Quarter: 2025Q2

REPORT INFORMATION
  Report Type: Spontaneous
  Country: US (occurrence: None)
  Receive Date: 20250424
  Receipt Date: 20250424
  Transmission Date: 20250717
  Serious: Yes (Hospitalization)
  Sender: FDA-CTU
  Company Number: None

PATIENT
  Age: 70 Year
  Sex: Male
  Weight: 55 kg

DRUGS (1)
  1. EMPAGLIFLOZIN [Suspect]
     Active Substance: EMPAGLIFLOZIN
     Indication: Urosepsis
     Dosage: FREQUENCY : DAILY;?
     Route: 048
     Dates: end: 20250417

REACTIONS (7)
  - Urosepsis [None]
  - Acinetobacter infection [None]
  - Enterococcal infection [None]
  - Klebsiella infection [None]
  - Proteus infection [None]
  - Bacteraemia [None]
  - Infection [None]

NARRATIVE: CASE EVENT DATE: 20250417
